FAERS Safety Report 8508841-6 (Version None)
Quarter: 2012Q3

REPORT INFORMATION
  Report Type: 
  Country: None (occurrence: None)
  Receive Date: 20120713
  Receipt Date: 20120711
  Transmission Date: 20120928
  Serious: No
  Sender: FDA-Public Use
  Company Number: US-PFIZER INC-2012109560

PATIENT
  Sex: Male
  Weight: 91 kg

DRUGS (3)
  1. QUINAPRIL [Concomitant]
     Indication: HYPERTENSION
     Dosage: 40 MG, DAILY
  2. LIPITOR [Suspect]
     Indication: BLOOD CHOLESTEROL INCREASED
     Dosage: 20 MG, DAILY
  3. LIPITOR [Suspect]
     Dosage: UNK
     Dates: start: 20120101, end: 20120101

REACTIONS (2)
  - PAIN [None]
  - PRODUCT COUNTERFEIT [None]
